FAERS Safety Report 21956047 (Version 1)
Quarter: 2023Q1

REPORT INFORMATION
  Report Type: Other
  Country: US (occurrence: None)
  Receive Date: 20230206
  Receipt Date: 20230206
  Transmission Date: 20230418
  Serious: Yes (Hospitalization)
  Sender: FDA-Public Use
  Company Number: US-ROCHE-3273539

PATIENT
  Age: 39 Year
  Sex: Female

DRUGS (1)
  1. OCREVUS [Suspect]
     Active Substance: OCRELIZUMAB
     Indication: Relapsing multiple sclerosis
     Dosage: YES
     Route: 065
     Dates: start: 20180829

REACTIONS (5)
  - Pneumonia viral [Unknown]
  - Pneumonia bacterial [Unknown]
  - Pulmonary oedema [Recovered/Resolved]
  - Dyspnoea [Unknown]
  - Breath sounds abnormal [Unknown]

NARRATIVE: CASE EVENT DATE: 20221128
